FAERS Safety Report 17732695 (Version 2)
Quarter: 2020Q3

REPORT INFORMATION
  Report Type: Spontaneous
  Country: JP (occurrence: JP)
  Receive Date: 20200501
  Receipt Date: 20200825
  Transmission Date: 20201102
  Serious: No
  Sender: FDA-Public Use
  Company Number: JP-GLAXOSMITHKLINE-JP2020072224

PATIENT
  Age: 70 Year
  Sex: Male

DRUGS (6)
  1. REXULTI [Concomitant]
     Active Substance: BREXPIPRAZOLE
     Dosage: UNK
  2. MIRTAZAPINE. [Concomitant]
     Active Substance: MIRTAZAPINE
     Dosage: UNK
  3. LAMICTAL [Suspect]
     Active Substance: LAMOTRIGINE
     Indication: BIPOLAR DISORDER
     Dosage: 200 MG, QD
     Route: 048
     Dates: end: 202004
  4. E KEPPRA [Concomitant]
     Active Substance: LEVETIRACETAM
     Dosage: UNK
  5. MOSAPRIDE CITRATE [Concomitant]
     Active Substance: MOSAPRIDE CITRATE
     Dosage: UNK
  6. SULPIRIDE [Concomitant]
     Active Substance: SULPIRIDE
     Dosage: UNK
     Dates: start: 202004

REACTIONS (2)
  - Rash [Recovering/Resolving]
  - Pruritus [Recovering/Resolving]

NARRATIVE: CASE EVENT DATE: 2020
